FAERS Safety Report 7274412-5 (Version None)
Quarter: 2011Q1

REPORT INFORMATION
  Report Type: 
  Country: None (occurrence: None)
  Receive Date: 20110204
  Receipt Date: 20110128
  Transmission Date: 20110831
  Serious: Yes (Other)
  Sender: FDA-Public Use
  Company Number: US-JNJFOC-20110103409

PATIENT
  Sex: Female
  Weight: 81.65 kg

DRUGS (4)
  1. DURAGESIC-50 [Suspect]
     Indication: INTERVERTEBRAL DISC PROTRUSION
     Route: 062
  2. SOMA [Concomitant]
     Indication: MUSCLE RELAXANT THERAPY
     Route: 048
  3. DURAGESIC-50 [Suspect]
     Route: 062
  4. ROXICODONE [Concomitant]
     Indication: BREAKTHROUGH PAIN
     Dosage: 30 MG/ONE 3-4 TIMES DAILY
     Route: 048

REACTIONS (2)
  - WRONG TECHNIQUE IN DRUG USAGE PROCESS [None]
  - DEPRESSION [None]
